FAERS Safety Report 4895400-X (Version None)
Quarter: 2006Q1

REPORT INFORMATION
  Report Type: 
  Country: None (occurrence: None)
  Receive Date: 20060130
  Receipt Date: 20050308
  Transmission Date: 20060701
  Serious: Yes (Life-Threatening, Hospitalization, Disabling, Other)
  Sender: FDA-Public Use
  Company Number: US-GLAXOSMITHKLINE-A0548852A

PATIENT
  Age: 54 Year
  Sex: Female
  Weight: 92.3 kg

DRUGS (2)
  1. COMBIVIR [Suspect]
     Indication: HIV INFECTION
     Dosage: 1TAB TWICE PER DAY
     Route: 048
     Dates: start: 20050119, end: 20050223
  2. SUSTIVA [Concomitant]

REACTIONS (2)
  - MYALGIA [None]
  - MYOSITIS [None]
